FAERS Safety Report 5817479-0 (Version None)
Quarter: 2008Q3

REPORT INFORMATION
  Report Type: 
  Country: None (occurrence: None)
  Receive Date: 20080722
  Receipt Date: 20080710
  Transmission Date: 20090109
  Serious: Yes (Other)
  Sender: FDA-Public Use
  Company Number: DE-ROCHE-575373

PATIENT
  Age: 76 Year
  Sex: Female

DRUGS (2)
  1. BONIVA [Suspect]
     Indication: DRUG USE FOR UNKNOWN INDICATION
     Route: 042
     Dates: start: 20080410
  2. ACTONEL [Concomitant]
     Route: 048

REACTIONS (3)
  - BLINDNESS [None]
  - VENOUS THROMBOSIS [None]
  - VISUAL FIELD DEFECT [None]
